FAERS Safety Report 24238557 (Version 2)
Quarter: 2024Q3

REPORT INFORMATION
  Report Type: Spontaneous
  Country: CO (occurrence: CO)
  Receive Date: 20240822
  Receipt Date: 20240826
  Transmission Date: 20241017
  Serious: Yes (Life-Threatening, Hospitalization, Other)
  Sender: BRISTOL MYERS SQUIBB
  Company Number: CO-BRISTOL-MYERS SQUIBB COMPANY-2024-132516

PATIENT
  Age: 72 Year
  Sex: Male

DRUGS (1)
  1. OPDIVO [Suspect]
     Active Substance: NIVOLUMAB
     Indication: Squamous cell carcinoma of the tongue
     Dosage: STRENGTH: 100MG/10ML AND 40 MG/4ML
     Route: 042
     Dates: start: 20240514

REACTIONS (1)
  - Distributive shock [Recovered/Resolved]

NARRATIVE: CASE EVENT DATE: 20240514
